FAERS Safety Report 7435140-6 (Version None)
Quarter: 2011Q2

REPORT INFORMATION
  Report Type: 
  Country: None (occurrence: None)
  Receive Date: 20110425
  Receipt Date: 20110419
  Transmission Date: 20111010
  Serious: Yes (Hospitalization, Other)
  Sender: FDA-Public Use
  Company Number: PHHO2011US04680

PATIENT
  Sex: Male
  Weight: 63.265 kg

DRUGS (3)
  1. ZOMETA [Suspect]
     Indication: MULTIPLE MYELOMA
     Dosage: 3 MG, Q3MO
     Route: 042
     Dates: start: 20100601, end: 20110216
  2. CALCIUM [Concomitant]
  3. VITAMIN D [Concomitant]

REACTIONS (3)
  - NEOPLASM MALIGNANT [None]
  - PNEUMONIA [None]
  - RENAL FAILURE ACUTE [None]
